FAERS Safety Report 15967462 (Version 1)
Quarter: 2019Q1

REPORT INFORMATION
  Report Type: Spontaneous
  Country: US (occurrence: US)
  Receive Date: 20190215
  Receipt Date: 20190215
  Transmission Date: 20190418
  Serious: No
  Sender: FDA-Public Use
  Company Number: US-PERRIGO-18US013821

PATIENT
  Age: 52 Year
  Sex: Female
  Weight: 64.85 kg

DRUGS (2)
  1. CETIRIZINE HYDROCHLORIDE. [Suspect]
     Active Substance: CETIRIZINE HYDROCHLORIDE
     Dosage: 10 MG AT 2200, 20 MG AT 0600
     Route: 048
     Dates: start: 20181126, end: 20181127
  2. CETIRIZINE HYDROCHLORIDE. [Suspect]
     Active Substance: CETIRIZINE HYDROCHLORIDE
     Indication: URTICARIA
     Dosage: 10 MG, NIGHTLY
     Route: 048
     Dates: start: 2013, end: 20181125

REACTIONS (3)
  - Wrong product administered [Recovered/Resolved]
  - Drug ineffective for unapproved indication [Unknown]
  - Accidental overdose [Recovered/Resolved]

NARRATIVE: CASE EVENT DATE: 2013
